FAERS Safety Report 24948715 (Version 4)
Quarter: 2025Q2

REPORT INFORMATION
  Report Type: Report from Study
  Country: CA (occurrence: CA)
  Receive Date: 20250210
  Receipt Date: 20250428
  Transmission Date: 20250717
  Serious: Yes (Other)
  Sender: TAKEDA
  Company Number: CA-TAKEDA-2025TUS011870

PATIENT
  Sex: Female
  Weight: 56.236 kg

DRUGS (1)
  1. VEDOLIZUMAB [Suspect]
     Active Substance: VEDOLIZUMAB
     Indication: Colitis ulcerative
     Dates: start: 20241219, end: 20250130

REACTIONS (9)
  - Haematochezia [Unknown]
  - Drug ineffective [Not Recovered/Not Resolved]
  - Weight decreased [Unknown]
  - Frequent bowel movements [Unknown]
  - Impaired work ability [Unknown]
  - Anxiety [Unknown]
  - Abdominal pain [Unknown]
  - Asthenia [Unknown]
  - Pain in extremity [Unknown]
